FAERS Safety Report 8695950 (Version 4)
Quarter: 2013Q1

REPORT INFORMATION
  Report Type: Spontaneous
  Country: US (occurrence: US)
  Receive Date: 20120801
  Receipt Date: 20130225
  Transmission Date: 20140127
  Serious: Yes (Hospitalization)
  Sender: FDA-Public Use
  Company Number: US-BIOGENIDEC-2012BI027578

PATIENT
  Age: 62 Year
  Sex: Female

DRUGS (1)
  1. TYSABRI [Suspect]
     Indication: MULTIPLE SCLEROSIS
     Route: 042
     Dates: start: 2006

REACTIONS (4)
  - Sepsis [Recovered/Resolved]
  - Abdominal hernia [Recovered/Resolved]
  - Multiple sclerosis relapse [Recovered/Resolved]
  - Body temperature increased [Unknown]
